FAERS Safety Report 19653695 (Version 1)
Quarter: 2021Q3

REPORT INFORMATION
  Report Type: Spontaneous
  Country: IT (occurrence: IT)
  Receive Date: 20210803
  Receipt Date: 20210803
  Transmission Date: 20211014
  Serious: Yes (Hospitalization)
  Sender: FDA-Public Use
  Company Number: IT-ELI_LILLY_AND_COMPANY-IT202107009704

PATIENT
  Age: 17 Year
  Sex: Female

DRUGS (7)
  1. RIVOTRIL [Suspect]
     Active Substance: CLONAZEPAM
     Indication: DRUG ABUSE
     Dosage: 6 ML, UNKNOWN
     Route: 048
     Dates: start: 20210626, end: 20210626
  2. ABILIFY [Suspect]
     Active Substance: ARIPIPRAZOLE
     Indication: DRUG ABUSE
     Dosage: 28 DOSAGE FORM, UNKNOWN
     Route: 048
     Dates: start: 20210626, end: 20210626
  3. EN [Suspect]
     Active Substance: DELORAZEPAM
     Indication: DRUG ABUSE
     Dosage: 15 DOSAGE FORM, UNKNOWN
     Route: 048
     Dates: start: 20210626, end: 20210626
  4. RESILIENT [Suspect]
     Active Substance: LITHIUM SULFATE
     Indication: DRUG ABUSE
     Dosage: 10 DOSAGE FORM, UNKNOWN
     Route: 048
     Dates: start: 20210626, end: 20210626
  5. PROZAC [Suspect]
     Active Substance: FLUOXETINE HYDROCHLORIDE
     Indication: DRUG ABUSE
     Dosage: 24 DOSAGE FORM, UNKNOWN
     Route: 048
     Dates: start: 20210626, end: 20210626
  6. DELORAZEPAM [Suspect]
     Active Substance: DELORAZEPAM
     Indication: DRUG ABUSE
     Dosage: 40 MG, UNKNOWN
     Route: 048
     Dates: start: 20210626, end: 20210626
  7. LYRICA [Suspect]
     Active Substance: PREGABALIN
     Indication: DRUG ABUSE
     Dosage: 84 DOSAGE FORM, UNKNOWN
     Route: 048
     Dates: start: 20210626, end: 20210626

REACTIONS (3)
  - Disruptive mood dysregulation disorder [Not Recovered/Not Resolved]
  - Drug abuse [Not Recovered/Not Resolved]
  - Intentional self-injury [Not Recovered/Not Resolved]

NARRATIVE: CASE EVENT DATE: 20210626
